FAERS Safety Report 13323404 (Version 2)
Quarter: 2017Q2

REPORT INFORMATION
  Report Type: Spontaneous
  Country: AT (occurrence: AT)
  Receive Date: 20170310
  Receipt Date: 20170529
  Transmission Date: 20170830
  Serious: Yes (Life-Threatening, Hospitalization)
  Sender: FDA-Public Use
  Company Number: AT-TEVA-746322ISR

PATIENT
  Age: 23 Year
  Sex: Female

DRUGS (1)
  1. IBUPROFEN. [Suspect]
     Active Substance: IBUPROFEN
     Indication: RESPIRATORY TRACT INFECTION
     Route: 048
     Dates: start: 201612, end: 201612

REACTIONS (47)
  - Hypertension [Recovered/Resolved]
  - Nosocomial infection [Recovered/Resolved]
  - Leukopenia [Recovered/Resolved]
  - Delirium [Recovered/Resolved]
  - Hypoproteinaemia [Recovered/Resolved]
  - Pancreatic failure [Recovered/Resolved]
  - Pneumonia [Recovered/Resolved]
  - Hepatic steatosis [Recovered/Resolved]
  - Hepatomegaly [Recovered/Resolved]
  - Gastrointestinal haemorrhage [Recovered/Resolved]
  - Urinary tract infection [Recovered/Resolved]
  - Tachycardia [Recovered/Resolved]
  - Drug reaction with eosinophilia and systemic symptoms [Recovered/Resolved]
  - Hepatotoxicity [Recovered/Resolved]
  - Inflammatory bowel disease [Recovered/Resolved]
  - Hepatic failure [Recovered/Resolved]
  - Lymphatic disorder [Recovered/Resolved]
  - Urticaria [Recovered/Resolved]
  - Drug reaction with eosinophilia and systemic symptoms [Recovered/Resolved]
  - Pathogen resistance [Unknown]
  - Cytomegalovirus colitis [Recovered/Resolved]
  - Acute kidney injury [Recovered/Resolved]
  - Acute respiratory distress syndrome [Recovered/Resolved]
  - Cardiac arrest [Recovered/Resolved]
  - Bradycardia [Recovered/Resolved]
  - Acute hepatic failure [Recovered/Resolved]
  - Swelling [Recovered/Resolved]
  - Tachypnoea [Recovered/Resolved]
  - Ocular icterus [Recovered/Resolved]
  - Oesophageal candidiasis [Recovered/Resolved]
  - Hydrocholecystis [Recovered/Resolved]
  - Diarrhoea haemorrhagic [Recovered/Resolved]
  - Renal failure [Recovered/Resolved]
  - Gastritis [Recovered/Resolved]
  - Acute hepatic failure [Recovered/Resolved]
  - Overdose [Recovered/Resolved]
  - Bradycardia [Recovered/Resolved]
  - Ascites [Recovered/Resolved]
  - Depression [Recovered/Resolved]
  - Liver function test abnormal [Recovered/Resolved]
  - Cholestasis [Recovered/Resolved]
  - Rash maculo-papular [Recovered/Resolved]
  - Faeces discoloured [Recovered/Resolved]
  - Cardiac failure [Recovered/Resolved]
  - Infection [Recovered/Resolved]
  - Malabsorption [Recovered/Resolved]
  - Rash maculo-papular [Recovered/Resolved]

NARRATIVE: CASE EVENT DATE: 2016
